FAERS Safety Report 4309592-4 (Version None)
Quarter: 2004Q1

REPORT INFORMATION
  Report Type: 
  Country: None (occurrence: None)
  Receive Date: 20040301
  Receipt Date: 20040216
  Transmission Date: 20041129
  Serious: Yes (Hospitalization)
  Sender: FDA-Public Use
  Company Number: 2003120224

PATIENT
  Age: 91 Year
  Sex: Female

DRUGS (6)
  1. ZOLOFT [Suspect]
     Indication: ILL-DEFINED DISORDER
     Dosage: ORAL
     Route: 048
  2. DONEPEZIL HCL [Suspect]
     Indication: ILL-DEFINED DISORDER
     Dosage: 10 MG (DAILY), ORAL
     Route: 048
  3. LEKOVIT CA (CALCIUM CARBONATE) [Suspect]
     Indication: ILL-DEFINED DISORDER
     Dosage: ORAL
     Route: 048
  4. CARBAMAZEPINE [Suspect]
     Indication: ILL-DEFINED DISORDER
     Dosage: 100 MG (DAILY), ORAL
     Route: 048
  5. LERCANIDIPINE [Suspect]
     Indication: ILL-DEFINED DISORDER
     Dosage: 10 MG (DAILY), ORAL
     Route: 048
  6. RISEDRONATE SODIUM (RISEDRONATE SODIUM) [Suspect]
     Indication: ILL-DEFINED DISORDER
     Dosage: 70 MG (DAILY), ORAL
     Route: 048

REACTIONS (6)
  - CEREBRAL HAEMATOMA [None]
  - CEREBRAL HAEMORRHAGE [None]
  - CONFUSIONAL STATE [None]
  - DEPRESSED LEVEL OF CONSCIOUSNESS [None]
  - HYPOCHLORAEMIA [None]
  - HYPONATRAEMIA [None]
